FAERS Safety Report 4646474-2 (Version None)
Quarter: 2005Q2

REPORT INFORMATION
  Report Type: 
  Country: None (occurrence: None)
  Receive Date: 20050427
  Receipt Date: 20040419
  Transmission Date: 20051028
  Serious: No
  Sender: FDA-Public Use
  Company Number: US-GLAXOSMITHKLINE-A0507586A

PATIENT
  Age: 64 Year
  Sex: Female

DRUGS (9)
  1. FLOVENT [Suspect]
     Indication: ASTHMA
     Dosage: 2PUFF SINGLE DOSE
     Route: 055
     Dates: start: 20040317, end: 20040318
  2. ATROVENT [Concomitant]
  3. AEROBID [Concomitant]
  4. ALBUTEROL [Concomitant]
  5. OXYGEN [Concomitant]
  6. NITROGLYCERIN [Concomitant]
  7. DIGITEK [Concomitant]
  8. ANTIBIOTIC [Concomitant]
  9. ASPIRIN [Concomitant]

REACTIONS (2)
  - HEART RATE INCREASED [None]
  - HEART VALVE STENOSIS [None]
